FAERS Safety Report 21036312 (Version 2)
Quarter: 2022Q3

REPORT INFORMATION
  Report Type: Spontaneous
  Country: JP (occurrence: JP)
  Receive Date: 20220701
  Receipt Date: 20220808
  Transmission Date: 20221026
  Serious: Yes (Other)
  Sender: FDA-Public Use
  Company Number: JP-MALLINCKRODT-T202203352

PATIENT
  Age: 60 Year
  Sex: Male
  Weight: 35 kg

DRUGS (7)
  1. NITRIC OXIDE [Suspect]
     Active Substance: NITRIC OXIDE
     Indication: Pulmonary hypertension
     Dosage: 800 PPM (INHALATION)
     Route: 055
     Dates: start: 20211020, end: 20211020
  2. OXYGEN [Concomitant]
     Active Substance: OXYGEN
     Indication: Product used for unknown indication
     Dosage: UNK
     Route: 065
  3. TADALAFIL [Concomitant]
     Active Substance: TADALAFIL
     Indication: Pulmonary hypertension
     Dosage: 40 MILLIGRAM
     Route: 065
  4. MACITENTAN [Concomitant]
     Active Substance: MACITENTAN
     Indication: Product used for unknown indication
     Dosage: 10 MILLIGRAM
     Route: 065
  5. SELEXIPAG [Concomitant]
     Active Substance: SELEXIPAG
     Indication: Product used for unknown indication
     Dosage: 2.4 MILLIGRAM
     Route: 065
  6. AZOSEMIDE [Concomitant]
     Active Substance: AZOSEMIDE
     Indication: Product used for unknown indication
     Dosage: UNK
     Route: 065
  7. TOLVAPTAN [Concomitant]
     Active Substance: TOLVAPTAN
     Indication: Product used for unknown indication
     Dosage: UNK
     Route: 065

REACTIONS (3)
  - Pulmonary arterial pressure increased [Recovered/Resolved]
  - Blood pressure decreased [Recovered/Resolved]
  - Product use issue [Unknown]

NARRATIVE: CASE EVENT DATE: 20211020
